FAERS Safety Report 18166407 (Version 2)
Quarter: 2020Q4

REPORT INFORMATION
  Report Type: Spontaneous
  Country: US (occurrence: US)
  Receive Date: 20200819
  Receipt Date: 20201112
  Transmission Date: 20210113
  Serious: No
  Sender: FDA-Public Use
  Company Number: US-RECORDATI RARE DISEASES-2088781

PATIENT
  Age: 77 Year
  Sex: Female

DRUGS (1)
  1. ISTURISA [Suspect]
     Active Substance: OSILODROSTAT PHOSPHATE
     Indication: PITUITARY-DEPENDENT CUSHING^S SYNDROME
     Route: 048
     Dates: start: 20200628

REACTIONS (5)
  - Fatigue [Unknown]
  - Muscular weakness [Unknown]
  - Dizziness [Unknown]
  - Fungal infection [Unknown]
  - Rash [Unknown]

NARRATIVE: CASE EVENT DATE: 2020
